FAERS Safety Report 8156744-1 (Version None)
Quarter: 2012Q1

REPORT INFORMATION
  Report Type: 
  Country: None (occurrence: None)
  Receive Date: 20120103
  Receipt Date: 20111025
  Transmission Date: 20120608
  Serious: No
  Sender: FDA-Public Use
  Company Number: AE-2011-002659

PATIENT
  Age: 68 Year
  Sex: Female

DRUGS (7)
  1. INCIVEK [Suspect]
     Dosage: 2250 MG (750 MG, 3 IN 1 D), ORAL
     Route: 048
     Dates: start: 20111019
  2. FEMARA [Concomitant]
  3. CALCIUM CARBONATE [Concomitant]
  4. RIBAVIRIN [Concomitant]
  5. PEGINTERFERON (PEGINTERFERON ALFA-2A) [Concomitant]
  6. ATACAND [Concomitant]
  7. ACTONEL [Concomitant]

REACTIONS (8)
  - PYREXIA [None]
  - INFLUENZA LIKE ILLNESS [None]
  - DEPRESSED MOOD [None]
  - ANORECTAL DISCOMFORT [None]
  - RECTAL HAEMORRHAGE [None]
  - NAUSEA [None]
  - PROCTALGIA [None]
  - RASH [None]
